FAERS Safety Report 9292304 (Version 2)
Quarter: 2013Q2

REPORT INFORMATION
  Report Type: Report from Study
  Country: BR (occurrence: BR)
  Receive Date: 20130516
  Receipt Date: 20130611
  Transmission Date: 20140414
  Serious: Yes (Other)
  Sender: FDA-Public Use
  Company Number: PHHY2013BR048379

PATIENT
  Sex: Female
  Weight: 50 kg

DRUGS (2)
  1. DIOVAN [Suspect]
     Indication: BLOOD PRESSURE
     Dosage: 80 MG, QD (IN THE MORNING)
     Dates: start: 2008
  2. SYNTHROID [Concomitant]
     Indication: DIABETES MELLITUS
     Dosage: 1 DF, DAILY
     Route: 048

REACTIONS (2)
  - Diabetes mellitus [Unknown]
  - Hearing impaired [Not Recovered/Not Resolved]
